FAERS Safety Report 21379561 (Version 1)
Quarter: 2022Q3

REPORT INFORMATION
  Report Type: Report from Study
  Country: GB (occurrence: GB)
  Receive Date: 20220927
  Receipt Date: 20220927
  Transmission Date: 20221026
  Serious: Yes (Hospitalization, Other)
  Sender: FDA-Public Use
  Company Number: GB-CELLTRION INC.-2022GB010884

PATIENT
  Age: 63 Year
  Sex: Female

DRUGS (157)
  1. DOCETAXEL [Suspect]
     Active Substance: DOCETAXEL
     Indication: Breast cancer metastatic
     Dosage: 750 MILLIGRAM (750 MG)
     Route: 042
     Dates: start: 20141219, end: 20150403
  2. DOCETAXEL [Suspect]
     Active Substance: DOCETAXEL
     Dosage: 750 MILLIGRAM (750 MILLIGRAM)
     Route: 042
  3. DOCETAXEL [Suspect]
     Active Substance: DOCETAXEL
     Dosage: 125 MILLIGRAM (125 MILLIGRAM, Q3WK/ 125 MG, TIW (CUMULATIVE DOSE: 10339.038 MG)
     Route: 042
     Dates: start: 20141219, end: 20150403
  4. DOCETAXEL [Suspect]
     Active Substance: DOCETAXEL
     Dosage: 125 MILLIGRAM (125MG, TIW (CUMULATIVE DOSE: 750MG)
     Route: 042
     Dates: start: 20141219, end: 20150403
  5. DOCETAXEL [Suspect]
     Active Substance: DOCETAXEL
     Dosage: 125 MILLIGRAM, Q3WK (CUMULATIVE DOSE: 625 MG)
     Route: 042
     Dates: start: 20141219, end: 20150403
  6. DOCETAXEL [Suspect]
     Active Substance: DOCETAXEL
     Dosage: 125 MILLIGRAM, Q3WK/ 125 MG, TIW (CUMULATIVE DOSE: 10339.038 MG)
     Route: 042
     Dates: start: 20141219, end: 20150403
  7. DOCETAXEL [Suspect]
     Active Substance: DOCETAXEL
     Dosage: 750 MILLIGRAM
     Route: 042
  8. TRASTUZUMAB [Suspect]
     Active Substance: TRASTUZUMAB
     Indication: Product used for unknown indication
     Dosage: 357 MG, TIW. THERAPY START AND END DATE: 03-APR-2015 TILL 07-AUG-2015
     Route: 042
     Dates: start: 20150403, end: 20150807
  9. TRASTUZUMAB [Suspect]
     Active Substance: TRASTUZUMAB
     Dosage: 483 MG Q3WK (CUMULATIVE DOSE: 39950.043 MG) / 483 MG, TIW (DOSE FORM: 230)
     Route: 042
     Dates: start: 20141219, end: 20150109
  10. TRASTUZUMAB [Suspect]
     Active Substance: TRASTUZUMAB
     Dosage: 483 MG Q3WK (CUMULATIVE DOSE: 39950.043 MG) / 483 MG, TIW (DOSE FORM: 230)
     Route: 042
     Dates: start: 20141219, end: 20150109
  11. TRASTUZUMAB [Suspect]
     Active Substance: TRASTUZUMAB
     Dosage: 378 MG, TIW. THERAPY START AND END DATE: 09-JAN-2015 TILL 03-APR-2015.
     Route: 042
     Dates: start: 20150109, end: 20150403
  12. TRASTUZUMAB [Suspect]
     Active Substance: TRASTUZUMAB
     Dosage: 200 MG, TIW. THERAPY START DATE: 01-AUG-2016
     Route: 042
     Dates: start: 20160801
  13. TRASTUZUMAB [Suspect]
     Active Substance: TRASTUZUMAB
     Dosage: 378 MG, TIW. THERAPY START AND END DATE: 09-JAN-2015 TILL 03-APR-2015.
     Route: 042
     Dates: start: 20150109, end: 20150403
  14. TRASTUZUMAB [Suspect]
     Active Substance: TRASTUZUMAB
     Dosage: 357 MILLIGRAM, Q3WK (CUMULATIVE DOSE: 27743.9999 MG; DOSAGE FORM: 293)
     Route: 042
     Dates: start: 20150403, end: 20150807
  15. TRASTUZUMAB [Suspect]
     Active Substance: TRASTUZUMAB
     Dosage: 357 MG, TIW. THERAPY START AND END DATE: 03-APR-2015 TILL 07-AUG-2015
     Route: 042
     Dates: start: 20150403, end: 20150807
  16. TRASTUZUMAB [Suspect]
     Active Substance: TRASTUZUMAB
     Dosage: 200 MILLIGRAM, Q3WK (CUMULATIVE DOSE 10914.286; DOSAGE FORM: 293)
     Route: 042
     Dates: start: 20160801
  17. TRASTUZUMAB [Suspect]
     Active Substance: TRASTUZUMAB
     Dosage: 200 MG Q3WK (CUMULATIVE DOSE: 10914.286 MG) / 200 MG TIW (DOSE FORM: 230)
     Route: 042
     Dates: start: 20160801
  18. TRASTUZUMAB [Suspect]
     Active Substance: TRASTUZUMAB
     Dosage: 336 MG Q3WK (CUMULATIVE DOSE: 24095.9999 MG) / 336 MG, TIW (DOSE FORM: 230)
     Route: 042
     Dates: start: 20150807, end: 20151029
  19. TRASTUZUMAB [Suspect]
     Active Substance: TRASTUZUMAB
     Dosage: 483 MG, TIW. THERAPY START AND END DATE: 19-DEC-2014 TILL 09-JAN-2015.
     Route: 042
     Dates: start: 20141219, end: 20150109
  20. TRASTUZUMAB [Suspect]
     Active Substance: TRASTUZUMAB
     Dosage: 336 MG, TIW. THERAPY START AND END DATE: 07-AUG-2015 TILL 29-OCT-2015.
     Route: 042
     Dates: start: 20150807, end: 20151029
  21. TRASTUZUMAB [Suspect]
     Active Substance: TRASTUZUMAB
     Dosage: 357 MG Q3WK (CUMULATIVE DOSE: 27743.99 MG) / 357 MG, TIW (DOSE FORM: 230)
     Route: 042
     Dates: start: 20150403, end: 20150807
  22. TRASTUZUMAB [Suspect]
     Active Substance: TRASTUZUMAB
     Dosage: 357 MG, TIW. THERAPY START AND END DATE: 03-APR-2015 TILL 07-AUG-2015
     Route: 042
     Dates: start: 20150403, end: 20150807
  23. TRASTUZUMAB [Suspect]
     Active Substance: TRASTUZUMAB
     Dosage: 336 MG Q3WK (CUMULATIVE DOSE: 24095.9999 MG) / 336 MG, TIW (DOSE FORM: 230)
     Route: 042
     Dates: start: 20150807, end: 20151029
  24. TRASTUZUMAB [Suspect]
     Active Substance: TRASTUZUMAB
     Dosage: 200 MG, TIW. THERAPY START DATE: 01-AUG-2016
     Route: 042
     Dates: start: 20160801
  25. TRASTUZUMAB [Suspect]
     Active Substance: TRASTUZUMAB
     Dosage: 378 MILLIGRAM, Q3WK (CUMULATIVE DOSE: 30887.25 MG; DOSAGE FORM: 293)
     Route: 042
     Dates: start: 20150109, end: 20150403
  26. TRASTUZUMAB [Suspect]
     Active Substance: TRASTUZUMAB
     Dosage: 378 MG, TIW. THERAPY START AND END DATE: 09-JAN-2015 TILL 03-APR-2015.
     Route: 042
     Dates: start: 20150109, end: 20150403
  27. TRASTUZUMAB [Suspect]
     Active Substance: TRASTUZUMAB
     Dosage: 200 MG, TIW. THERAPY START DATE: 01-AUG-2016
     Route: 042
     Dates: start: 20160801
  28. TRASTUZUMAB [Suspect]
     Active Substance: TRASTUZUMAB
     Dosage: 357 MG, TIW. THERAPY START AND END DATE: 30-OCT-2015 TILL 24-JUN-2016.
     Route: 042
     Dates: start: 20151030, end: 20160624
  29. TRASTUZUMAB [Suspect]
     Active Substance: TRASTUZUMAB
     Dosage: 357 MG Q3WK (CUMULATIVE DOSE: 27743.99 MG) / 357 MG, TIW (DOSE FORM: 230)
     Route: 042
     Dates: start: 20150403, end: 20150807
  30. TRASTUZUMAB [Suspect]
     Active Substance: TRASTUZUMAB
     Dosage: 336 MG, Q3WK (CUMULATIVE DOSE: 24095.9999; DOSE FORM: 293)
     Route: 042
     Dates: start: 20150807, end: 20151029
  31. TRASTUZUMAB [Suspect]
     Active Substance: TRASTUZUMAB
     Dosage: 357 MG, Q3WK CUMULATIVE DOSE: 24173.291 MG; DOSE FORM: 293)
     Route: 042
     Dates: start: 20151030, end: 20160624
  32. TRASTUZUMAB [Suspect]
     Active Substance: TRASTUZUMAB
     Dosage: 483 MG, TIW. THERAPY START AND END DATE: 19-DEC-2014 TILL 09-JAN-2015.
     Route: 042
     Dates: start: 20141219, end: 20150109
  33. TRASTUZUMAB [Suspect]
     Active Substance: TRASTUZUMAB
     Dosage: 200 MG Q3WK (CUMULATIVE DOSE: 10914.286 MG) / 200 MG TIW (DOSE FORM: 230)
     Route: 042
     Dates: start: 20160801
  34. TRASTUZUMAB [Suspect]
     Active Substance: TRASTUZUMAB
     Dosage: 357 MG EVERY 3 WEEKS (357 MG, TIW; CUMULATIVE DOSE: 24173.291 MG) / 357 MG, TIW (DOSE FORM: 230)
     Route: 042
     Dates: start: 20151030, end: 20160624
  35. TRASTUZUMAB [Suspect]
     Active Substance: TRASTUZUMAB
     Dosage: 483 MG, TIW. THERAPY START AND END DATE: 19-DEC-2014 TILL 09-JAN-2015.
     Route: 042
     Dates: start: 20141219, end: 20150109
  36. TRASTUZUMAB [Suspect]
     Active Substance: TRASTUZUMAB
     Dosage: 378 MG Q3WK (CUMULATIVE DOSE: 30887.25 MG) (DOSE FORM: 230)
     Route: 042
     Dates: start: 20150109, end: 20150403
  37. TRASTUZUMAB [Suspect]
     Active Substance: TRASTUZUMAB
     Dosage: 200 MG, TIW. THERAPY START DATE: 01-AUG-2016
     Route: 042
     Dates: start: 20160801
  38. TRASTUZUMAB [Suspect]
     Active Substance: TRASTUZUMAB
     Dosage: 378 MG, TIW. THERAPY START AND END DATE: 09-JAN-2015 TILL 03-APR-2015.
     Route: 042
     Dates: start: 20150109, end: 20150403
  39. TRASTUZUMAB [Suspect]
     Active Substance: TRASTUZUMAB
     Dosage: 378 MG Q3WK (CUMULATIVE DOSE: 30887.25 MG) (DOSE FORM: 230)
     Route: 042
     Dates: start: 20150109, end: 20150403
  40. TRASTUZUMAB [Suspect]
     Active Substance: TRASTUZUMAB
     Dosage: 483 MG, TIW. THERAPY START AND END DATE: 19-DEC-2014 TILL 09-JAN-2015.
     Route: 042
     Dates: start: 20141219, end: 20150109
  41. TRASTUZUMAB [Suspect]
     Active Substance: TRASTUZUMAB
     Dosage: 357 MG, TIW. THERAPY START AND END DATE: 03-APR-2015 TILL 07-AUG-2015
     Route: 042
     Dates: start: 20150403, end: 20150807
  42. TRASTUZUMAB [Suspect]
     Active Substance: TRASTUZUMAB
     Dosage: 336 MG, TIW. THERAPY START AND END DATE: 07-AUG-2015 TILL 29-OCT-2015.
     Route: 042
     Dates: start: 20150807, end: 20151029
  43. TRASTUZUMAB [Suspect]
     Active Substance: TRASTUZUMAB
     Dosage: 357 MG, TIW. THERAPY START AND END DATE: 30-OCT-2015 TILL 24-JUN-2016.
     Route: 042
     Dates: start: 20151030, end: 20160624
  44. TRASTUZUMAB [Suspect]
     Active Substance: TRASTUZUMAB
     Dosage: 357 MG EVERY 3 WEEKS (357 MG, TIW; CUMULATIVE DOSE: 24173.291 MG) / 357 MG, TIW (DOSE FORM: 230)
     Route: 042
     Dates: start: 20151030, end: 20160624
  45. TRASTUZUMAB [Suspect]
     Active Substance: TRASTUZUMAB
     Dosage: 357 MG, TIW. THERAPY START AND END DATE: 30-OCT-2015 TILL 24-JUN-2016.
     Route: 042
     Dates: start: 20151030, end: 20160624
  46. TRASTUZUMAB [Suspect]
     Active Substance: TRASTUZUMAB
     Dosage: 336 MG, TIW. THERAPY START AND END DATE: 07-AUG-2015 TILL 29-OCT-2015.
     Route: 042
     Dates: start: 20150807, end: 20151029
  47. TRASTUZUMAB [Suspect]
     Active Substance: TRASTUZUMAB
     Dosage: 483 MG, TIW. THERAPY START AND END DATE: 19-DEC-2014 TILL 09-JAN-2015.
     Route: 042
     Dates: start: 20141219, end: 20150109
  48. TRASTUZUMAB [Suspect]
     Active Substance: TRASTUZUMAB
     Dosage: 336 MG, TIW. THERAPY START AND END DATE: 07-AUG-2015 TILL 29-OCT-2015.
     Route: 042
     Dates: start: 20150807, end: 20151029
  49. TRASTUZUMAB [Suspect]
     Active Substance: TRASTUZUMAB
     Dosage: 357 MG, TIW. THERAPY START AND END DATE: 30-OCT-2015 TILL 24-JUN-2016.
     Route: 042
     Dates: start: 20151030, end: 20160624
  50. TRASTUZUMAB [Suspect]
     Active Substance: TRASTUZUMAB
     Dosage: 483 MG, Q3WK (CUMULATIVE DOSE: 39950.043 MG; DOSE FORM: 293)
     Route: 042
     Dates: start: 20141219, end: 20150109
  51. TRASTUZUMAB [Suspect]
     Active Substance: TRASTUZUMAB
     Dosage: 200 MG, TIW. THERAPY START DATE: 01-AUG-2016
     Route: 042
     Dates: start: 20160801
  52. TRASTUZUMAB [Suspect]
     Active Substance: TRASTUZUMAB
     Dosage: 336 MG, TIW. THERAPY START AND END DATE: 07-AUG-2015 TILL 29-OCT-2015.
     Route: 042
     Dates: start: 20150807, end: 20151029
  53. TRASTUZUMAB [Suspect]
     Active Substance: TRASTUZUMAB
     Dosage: 378 MG, TIW. THERAPY START AND END DATE: 09-JAN-2015 TILL 03-APR-2015.
     Route: 042
     Dates: start: 20150109, end: 20150403
  54. TRASTUZUMAB [Suspect]
     Active Substance: TRASTUZUMAB
     Dosage: 357 MG, TIW. THERAPY START AND END DATE: 30-OCT-2015 TILL 24-JUN-2016.
     Route: 042
     Dates: start: 20151030, end: 20160624
  55. TRASTUZUMAB [Suspect]
     Active Substance: TRASTUZUMAB
     Dosage: 357 MG, TIW. THERAPY START AND END DATE: 03-APR-2015 TILL 07-AUG-2015
     Route: 042
     Dates: start: 20150403, end: 20150807
  56. PERTUZUMAB [Suspect]
     Active Substance: PERTUZUMAB
     Indication: Breast cancer metastatic
     Dosage: 840 MILLIGRAM (840 MG, TIW (DOSE FORM: 230; CUMULATIVE DOSE: 69478.336 MG)
     Route: 042
     Dates: start: 20141219, end: 20150109
  57. PERTUZUMAB [Suspect]
     Active Substance: PERTUZUMAB
     Dosage: 840 MILLIGRAM (840MG, TIW (CUMULATIVE DOSE: 12600MG)
     Route: 042
     Dates: start: 20141219, end: 20150109
  58. PERTUZUMAB [Suspect]
     Active Substance: PERTUZUMAB
     Dosage: 420 MILLIGRAM (TIW/ 420 MILLIGRAM, Q3WK (DOSE FORM: 230; CUMULATIVE DOSE: 34319.168 MG)
     Route: 042
     Dates: start: 20150109, end: 20160624
  59. PERTUZUMAB [Suspect]
     Active Substance: PERTUZUMAB
     Dosage: 420 MILLIGRAM (420MG, TIW (CUMULATIVE DOSE: 12600MG)
     Route: 042
     Dates: start: 20150109, end: 20160624
  60. PERTUZUMAB [Suspect]
     Active Substance: PERTUZUMAB
     Dosage: 420 MILLIGRAM (420 MG, TIW (DOSE FORM: 230; CUMULATIVE DOSE: 34319.168 MG)
     Route: 042
     Dates: start: 20150109, end: 20160624
  61. PERTUZUMAB [Suspect]
     Active Substance: PERTUZUMAB
     Dosage: 420 MILLIGRAM (420 MILLIGRAM, Q3WK (DOSE FORM: 230; CUMULATIVE DOSE: 840 MG)
     Route: 042
     Dates: start: 20150109, end: 20160624
  62. PERTUZUMAB [Suspect]
     Active Substance: PERTUZUMAB
     Dosage: 840 MILLIGRAM (840MG, TIW (CUMULATIVE DOSE: 12600MG)
     Route: 042
     Dates: start: 20141219, end: 20150109
  63. PERTUZUMAB [Suspect]
     Active Substance: PERTUZUMAB
     Dosage: 840 MILLIGRAM (840 MILLIGRAM, Q3WK (CUMULATIVE DOSE: 840 MG)
     Route: 042
     Dates: start: 20141219, end: 20150109
  64. PERTUZUMAB [Suspect]
     Active Substance: PERTUZUMAB
     Dosage: 840 MILLIGRAM (TIW/ 840 MILLIGRAM, Q3WK (DOSE FORM: 230; CUMULATIVE DOSE: 69478.336 MG)
     Route: 042
     Dates: start: 20141219, end: 20150109
  65. PERTUZUMAB [Suspect]
     Active Substance: PERTUZUMAB
     Dosage: 420 MILLIGRAM (420MG, TIW (CUMULATIVE DOSE: 12600MG)
     Route: 042
     Dates: start: 20150109, end: 20160624
  66. ADO-TRASTUZUMAB EMTANSINE [Suspect]
     Active Substance: ADO-TRASTUZUMAB EMTANSINE
     Indication: Breast cancer metastatic
     Dosage: 220 MG, TIW (MOST RECENT DOSE PRIOR TO ADVERSE EVENT: 31/MAR/2017), CUMULATIVE DOSE: 11401.27MG
     Route: 042
     Dates: start: 20160824, end: 20170310
  67. ADO-TRASTUZUMAB EMTANSINE [Suspect]
     Active Substance: ADO-TRASTUZUMAB EMTANSINE
     Dosage: 180 MILLIGRAM (180MG, TIW (CUMULATIVE DOSE: 11401.27MG)
     Route: 042
     Dates: start: 20191101
  68. ADO-TRASTUZUMAB EMTANSINE [Suspect]
     Active Substance: ADO-TRASTUZUMAB EMTANSINE
     Dosage: 200 MILLIGRAM (200 MG, Q3WK (CUMULATIVE DOSE: 10415.94 MG)
     Route: 042
     Dates: start: 20170331, end: 20191101
  69. ADO-TRASTUZUMAB EMTANSINE [Suspect]
     Active Substance: ADO-TRASTUZUMAB EMTANSINE
     Dosage: 220 MG, TIW (MOST RECENT DOSE PRIOR TO ADVERSE EVENT: 31/MAR/2017) (DOSE FORM: 230;
     Route: 042
     Dates: start: 20160824, end: 20170310
  70. ADO-TRASTUZUMAB EMTANSINE [Suspect]
     Active Substance: ADO-TRASTUZUMAB EMTANSINE
     Dosage: 200 MG, TIW (CUMULATIVE DOSE: 11401.27MG)
     Route: 042
     Dates: start: 20170331, end: 20191101
  71. ADO-TRASTUZUMAB EMTANSINE [Suspect]
     Active Substance: ADO-TRASTUZUMAB EMTANSINE
     Dosage: 200 MG, TIW (CUMULATIVE DOSE: 11401.27MG)
     Route: 042
     Dates: start: 20170331, end: 20191101
  72. ADO-TRASTUZUMAB EMTANSINE [Suspect]
     Active Substance: ADO-TRASTUZUMAB EMTANSINE
     Dosage: 180MG, TIW (CUMULATIVE DOSE: 11401.27MG)
     Route: 042
     Dates: start: 20191101
  73. ADO-TRASTUZUMAB EMTANSINE [Suspect]
     Active Substance: ADO-TRASTUZUMAB EMTANSINE
     Dosage: 200 MG, TIW (CUMULATIVE DOSE: 11401.27MG)
     Route: 042
     Dates: start: 20160801, end: 20160823
  74. ADO-TRASTUZUMAB EMTANSINE [Suspect]
     Active Substance: ADO-TRASTUZUMAB EMTANSINE
     Dosage: 200 MILLIGRAM (200 MG, Q3WK)
     Route: 065
     Dates: start: 20170331, end: 20191101
  75. ADO-TRASTUZUMAB EMTANSINE [Suspect]
     Active Substance: ADO-TRASTUZUMAB EMTANSINE
     Dosage: 200 MILLIGRAM (200 MG, TIW (CUMULATIVE DOSE: 11401.27MG)
     Route: 042
     Dates: start: 20160801, end: 20160823
  76. ADO-TRASTUZUMAB EMTANSINE [Suspect]
     Active Substance: ADO-TRASTUZUMAB EMTANSINE
     Dosage: 200 MILLIGRAM (200 MG, Q3WK (CUMULATIVE DOSE: 10415.94 MG)
     Route: 042
     Dates: start: 20160801, end: 20160823
  77. ADO-TRASTUZUMAB EMTANSINE [Suspect]
     Active Substance: ADO-TRASTUZUMAB EMTANSINE
     Dosage: 200 MILLIGRAM (200 MG, TIW (DOSE FORM: 230; CUMULATIVE DOSE: 8609.523 MG)
     Route: 042
     Dates: start: 20170331, end: 20191101
  78. ADO-TRASTUZUMAB EMTANSINE [Suspect]
     Active Substance: ADO-TRASTUZUMAB EMTANSINE
     Dosage: 220 MILLIGRAM (220 MG, Q3WK (CUMULATIVE DOSE: 10415.94 MG)
     Route: 042
     Dates: start: 20160824, end: 20170310
  79. ADO-TRASTUZUMAB EMTANSINE [Suspect]
     Active Substance: ADO-TRASTUZUMAB EMTANSINE
     Dosage: 180 MILLIGRAM (180 MG, TIW (DOSE FORM: 230; CUMULATIVE DOSE: 351.7857 MG)
     Route: 042
     Dates: start: 20191101
  80. ADO-TRASTUZUMAB EMTANSINE [Suspect]
     Active Substance: ADO-TRASTUZUMAB EMTANSINE
     Dosage: 200 MG, TIW (DOSE FORM: 230; CUMULATIVE DOSE: 10914.286 MG)/ 200 MILLIGRAM, Q3WK
     Route: 042
     Dates: start: 20160801, end: 20160823
  81. ADO-TRASTUZUMAB EMTANSINE [Suspect]
     Active Substance: ADO-TRASTUZUMAB EMTANSINE
     Dosage: 220 MG, TIW (MOST RECENT DOSE PRIOR TO ADVERSE EVENT: 31/MAR/2017) (DOSE FORM: 230;
     Route: 042
     Dates: start: 20160824, end: 20170310
  82. ADO-TRASTUZUMAB EMTANSINE [Suspect]
     Active Substance: ADO-TRASTUZUMAB EMTANSINE
     Dosage: 200 MG, TIW (DOSE FORM: 230; CUMULATIVE DOSE: 10914.286 MG)
     Route: 042
     Dates: start: 20160801, end: 20160823
  83. ADO-TRASTUZUMAB EMTANSINE [Suspect]
     Active Substance: ADO-TRASTUZUMAB EMTANSINE
     Dosage: 220 MG, TIW (MOST RECENT DOSE PRIOR TO ADVERSE EVENT: 31/MAR/2017), CUMULATIVE DOSE: 11401.27MG
     Route: 042
     Dates: start: 20160824, end: 20170310
  84. ADO-TRASTUZUMAB EMTANSINE [Suspect]
     Active Substance: ADO-TRASTUZUMAB EMTANSINE
     Dosage: 200 MG, TIW (DOSE FORM: 230; CUMULATIVE DOSE: 8609.523 MG)/ 200 MILLIGRAM, Q3WK
     Route: 042
     Dates: start: 20170331, end: 20191101
  85. ADO-TRASTUZUMAB EMTANSINE [Suspect]
     Active Substance: ADO-TRASTUZUMAB EMTANSINE
     Dosage: 180 MILLIGRAM, Q3WK (CUMULATIVE DOSE 10415.94 MG)
     Route: 042
     Dates: start: 20191101
  86. ADO-TRASTUZUMAB EMTANSINE [Suspect]
     Active Substance: ADO-TRASTUZUMAB EMTANSINE
     Dosage: 200 MG, TIW (CUMULATIVE DOSE: 11401.27MG)
     Route: 042
     Dates: start: 20170331, end: 20191101
  87. ADO-TRASTUZUMAB EMTANSINE [Suspect]
     Active Substance: ADO-TRASTUZUMAB EMTANSINE
     Dosage: 220 MG, TIW (MOST RECENT DOSE PRIOR TO ADVERSE EVENT: 31/MAR/2017), CUMULATIVE DOSE: 11401.27MG
     Route: 042
     Dates: start: 20160824, end: 20170310
  88. ADO-TRASTUZUMAB EMTANSINE [Suspect]
     Active Substance: ADO-TRASTUZUMAB EMTANSINE
     Dosage: 180 MG, TIW (DOSE FORM: 230; CUMULATIVE DOSE: 351.7857 MG)/ 180 MILLIGRAM, Q3WK
     Route: 042
     Dates: start: 20191101
  89. ADO-TRASTUZUMAB EMTANSINE [Suspect]
     Active Substance: ADO-TRASTUZUMAB EMTANSINE
     Dosage: 200 MG, TIW (CUMULATIVE DOSE: 11401.27MG)
     Route: 042
     Dates: start: 20160801, end: 20160823
  90. ADO-TRASTUZUMAB EMTANSINE [Suspect]
     Active Substance: ADO-TRASTUZUMAB EMTANSINE
     Dosage: 180MG, TIW (CUMULATIVE DOSE: 11401.27MG)
     Route: 042
     Dates: start: 20191101
  91. AMITRIPTYLINE [Concomitant]
     Active Substance: AMITRIPTYLINE
     Indication: Osteoarthritis
     Dosage: 50 MILLIGRAM (DOSE FORM: 245)
     Route: 048
     Dates: start: 20160115
  92. AMITRIPTYLINE [Concomitant]
     Active Substance: AMITRIPTYLINE
     Indication: Neuralgia
     Dosage: 50 MILLIGRAM (50 MG)
     Route: 048
     Dates: start: 20160115
  93. AMITRIPTYLINE [Concomitant]
     Active Substance: AMITRIPTYLINE
     Dosage: UNK (DOSE FORM: 245)
     Route: 065
  94. AMITRIPTYLINE [Concomitant]
     Active Substance: AMITRIPTYLINE
     Dosage: UNK
     Route: 065
  95. AMITRIPTYLINE [Concomitant]
     Active Substance: AMITRIPTYLINE
     Dosage: UNK
     Route: 065
  96. AMITRIPTYLINE [Concomitant]
     Active Substance: AMITRIPTYLINE
     Dosage: 50 MILLIGRAM (50 MG)
     Route: 048
     Dates: start: 20160115
  97. AMITRIPTYLINE [Concomitant]
     Active Substance: AMITRIPTYLINE
     Dosage: UNK (DOSE FORM: 245)
     Route: 065
  98. AMITRIPTYLINE [Concomitant]
     Active Substance: AMITRIPTYLINE
     Dosage: 50 MG (DOSE FORM: 245)
     Route: 048
     Dates: start: 20160115
  99. BUPRENORPHINE [Concomitant]
     Active Substance: BUPRENORPHINE
     Indication: Analgesic therapy
     Dosage: 20 MICROGRAM, QW (20 UG, QW (DOSE FORM: 250^ CUMULATIVE DOSE: 34.285713 UG)
     Route: 062
     Dates: start: 20190909, end: 20201007
  100. BUPRENORPHINE [Concomitant]
     Active Substance: BUPRENORPHINE
     Dosage: 20 MICROGRAM, QW (20 UG, QW (DOSE FORM: 250; CUMULATIVE DOSE: 34.285713 UG)/ 20 MICROGRAM, QWK)
     Route: 062
     Dates: start: 20190909, end: 20201007
  101. BUPRENORPHINE [Concomitant]
     Active Substance: BUPRENORPHINE
     Dosage: 15 MICROGRAM, QW (15 UG, QW (DOSE FORM: 250; CUMULATIVE DOSE: 818.5714 UG)
     Route: 062
     Dates: start: 20201007
  102. BUPRENORPHINE [Concomitant]
     Active Substance: BUPRENORPHINE
     Dosage: 15 MICROGRAM, QW (15 UG, QW/ 15 MICROGRAM, QWK (DOSE FORM: 250; CUMULATIVE DOSE: 818.5714 UG)
     Route: 062
     Dates: start: 20201007
  103. BUPRENORPHINE [Concomitant]
     Active Substance: BUPRENORPHINE
     Dosage: 20 MICROGRAM, QW- (20 MICROGRAM, QWK (DOSE FORM: 250; CUMULATIVE DOSE: 37.519 UG)
     Route: 062
     Dates: start: 20190909, end: 20201007
  104. BUPRENORPHINE [Concomitant]
     Active Substance: BUPRENORPHINE
     Dosage: 15 MICROGRAM, QW (15UG, QW (CUMULATIVE DOSE: 36.861UG)
     Route: 062
     Dates: start: 20201007
  105. BUPRENORPHINE [Concomitant]
     Active Substance: BUPRENORPHINE
     Dosage: 15 MICROGRAM, QW (15UG, QW (CUMULATIVE DOSE: 36.861UG)
     Route: 062
     Dates: start: 20201007
  106. BUPRENORPHINE [Concomitant]
     Active Substance: BUPRENORPHINE
     Dosage: 20 MICROGRAM, QW (20UG, QW (CUMULATIVE DOSE: 36.861UG)
     Route: 062
     Dates: start: 20190909, end: 20201007
  107. BUPRENORPHINE [Concomitant]
     Active Substance: BUPRENORPHINE
     Dosage: 20 MICROGRAM, QW (20UG, QW (CUMULATIVE DOSE: 36.861UG)
     Route: 062
     Dates: start: 20190909, end: 20201007
  108. BUPRENORPHINE [Concomitant]
     Active Substance: BUPRENORPHINE
     Dosage: 15 MICROGRAM, QW (15 MICROGRAM, QWK (CUMULATIVE DOSE: 37.519 UG)
     Route: 062
     Dates: start: 20201007
  109. CHOLECALCIFEROL [Concomitant]
     Active Substance: CHOLECALCIFEROL
     Indication: Vitamin supplementation
     Dosage: 800 INTERNATIONAL UNIT, QD (800 U, QD)
     Route: 048
     Dates: start: 20170424
  110. CHOLECALCIFEROL [Concomitant]
     Active Substance: CHOLECALCIFEROL
     Dosage: 1 DOSAGE FORM (UNK, QD (800 U)
     Route: 048
     Dates: start: 20170424
  111. CHOLECALCIFEROL [Concomitant]
     Active Substance: CHOLECALCIFEROL
     Dosage: 880 DOSAGE FORM, UNK, QD (800 U) (DOSE FORM: 5)
     Route: 048
     Dates: start: 20170424
  112. DOCUSATE SODIUM [Concomitant]
     Active Substance: DOCUSATE SODIUM
     Indication: Constipation
     Dosage: 100 MILLIGRAM (100 MG (AS NECESSARY) (DOSE FORM: 5)
     Route: 048
     Dates: start: 20170309
  113. DOMPERIDONE [Concomitant]
     Active Substance: DOMPERIDONE
     Indication: Product used for unknown indication
     Dosage: 125 MILLIGRAM, QD (CUMULATIVE DOSE: 875 MG)
     Route: 042
     Dates: start: 20160801, end: 20160807
  114. DOMPERIDONE [Concomitant]
     Active Substance: DOMPERIDONE
     Dosage: UNK
     Route: 065
     Dates: start: 20160801, end: 20160807
  115. GABAPENTIN [Concomitant]
     Active Substance: GABAPENTIN
     Indication: Neuralgia
     Dosage: 900 MILLIGRAM, QD (DOSE FORM: 5; CUMULATIVE DOSE: 1161862.5 MG)/300 MG, QD 3 TIMES PER DAY
     Route: 048
     Dates: start: 20160309
  116. GABAPENTIN [Concomitant]
     Active Substance: GABAPENTIN
     Dosage: 900 MILLIGRAM (300 MG, QD, 3X/DAY)
     Route: 048
     Dates: start: 20160309
  117. GABAPENTIN [Concomitant]
     Active Substance: GABAPENTIN
     Dosage: 300 MILLIGRAM (300 MG, QD (DOSE FORM: 5)
     Route: 048
     Dates: start: 20160309
  118. GABAPENTIN [Concomitant]
     Active Substance: GABAPENTIN
     Dosage: 300 MILLIGRAM, TID (CUMULATIVE DOSE: 387287.5 MG)
     Route: 048
     Dates: start: 20160309
  119. LACTULOSE [Concomitant]
     Active Substance: LACTULOSE
     Indication: Constipation
     Dosage: 20 MILLIGRAM (20 MG, QD (CUMULATIVE DOSE: 7500.00 MG)/10 MG, BID)
     Route: 048
     Dates: start: 20200930
  120. LACTULOSE [Concomitant]
     Active Substance: LACTULOSE
     Dosage: 20 MILLIGRAM (10 MILLIGRAM, BID)
     Route: 048
     Dates: start: 20200930
  121. LACTULOSE [Concomitant]
     Active Substance: LACTULOSE
     Dosage: 40 MILLIGRAM
     Route: 048
     Dates: start: 20200930
  122. LACTULOSE [Concomitant]
     Active Substance: LACTULOSE
     Dosage: 20 MILLIGRAM (10 MG, BID; 40 MG, QD)
     Route: 048
     Dates: start: 20200930
  123. LACTULOSE [Concomitant]
     Active Substance: LACTULOSE
     Dosage: 40 MILLIGRAM (10 MG BID (CUMULATIVE DOSE: 7500 MG))
     Route: 048
     Dates: start: 20200930
  124. LACTULOSE [Concomitant]
     Active Substance: LACTULOSE
     Dosage: 10 MILLIGRAM, QD (10 MILLIGRAM, BID)
     Route: 048
     Dates: start: 20200930
  125. LANSOPRAZOLE [Concomitant]
     Active Substance: LANSOPRAZOLE
     Indication: Product used for unknown indication
     Dosage: 30 MILLIGRAM, QD (30 MILLIGRAM, QD (DOSE FORM: 5; CUMULATIVE DOSE: 81000 MG)
     Route: 048
     Dates: start: 20120430
  126. POLYETHYLENE GLYCOL 3350\POTASSIUM CHLORIDE\SODIUM BICARBONATE\SODIUM [Concomitant]
     Active Substance: POLYETHYLENE GLYCOL 3350\POTASSIUM CHLORIDE\SODIUM BICARBONATE\SODIUM CHLORIDE
     Indication: Constipation
     Dosage: UNK
     Route: 048
     Dates: start: 20170228
  127. LOPERAMIDE [Concomitant]
     Active Substance: LOPERAMIDE
     Indication: Diarrhoea
     Dosage: UNK
     Route: 048
     Dates: start: 20150717, end: 20150720
  128. LOPERAMIDE [Concomitant]
     Active Substance: LOPERAMIDE
     Dosage: UNK
     Route: 065
  129. LOPERAMIDE [Concomitant]
     Active Substance: LOPERAMIDE
     Dosage: UNK
     Route: 048
     Dates: start: 20150717, end: 20150720
  130. LOPERAMIDE [Concomitant]
     Active Substance: LOPERAMIDE
     Dosage: 2 MILLIGRAM (2 MG)
     Route: 048
     Dates: start: 20150825
  131. LOPERAMIDE [Concomitant]
     Active Substance: LOPERAMIDE
     Dosage: UNK (DOSE FORM: 245)
     Route: 065
  132. LOPERAMIDE [Concomitant]
     Active Substance: LOPERAMIDE
     Dosage: 2 MG (DOSE FORM: 245)/ 2 MILLIGRAM
     Route: 048
     Dates: start: 20150825
  133. LOPERAMIDE [Concomitant]
     Active Substance: LOPERAMIDE
     Dosage: UNK (DOSE FORM: 245)
     Route: 048
     Dates: start: 20150717, end: 20150720
  134. LOPERAMIDE [Concomitant]
     Active Substance: LOPERAMIDE
     Dosage: UNK
     Route: 065
  135. LOPERAMIDE [Concomitant]
     Active Substance: LOPERAMIDE
     Dosage: 2 MILLIGRAM (2 MG (DOSE FORM: 245)
     Route: 048
     Dates: start: 20150825
  136. LOPERAMIDE [Concomitant]
     Active Substance: LOPERAMIDE
     Dosage: 2 MILLIGRAM (2 MG)
     Route: 048
     Dates: start: 20150825
  137. MIRTAZAPINE [Concomitant]
     Active Substance: MIRTAZAPINE
     Indication: Insomnia
     Dosage: 7.5 MILLIGRAM (7.5 MG (DOSE FORM: 245)
     Route: 048
     Dates: start: 20180116, end: 20200120
  138. MIRTAZAPINE [Concomitant]
     Active Substance: MIRTAZAPINE
     Indication: Anxiety
     Dosage: 7.5 MILLIGRAM (7.5 MG (DOSE FORM: 245)/ 7.5 MILLIGRAM
     Route: 048
     Dates: start: 20180116, end: 20200120
  139. MIRTAZAPINE [Concomitant]
     Active Substance: MIRTAZAPINE
     Dosage: 30 MILLIGRAM (30 MG (DOSE FORM: 245)
     Route: 048
     Dates: start: 20030430
  140. MIRTAZAPINE [Concomitant]
     Active Substance: MIRTAZAPINE
     Dosage: 30 MILLIGRAM (30 MG (DOSE FORM: 245)/ 30 MILLIGRAM)
     Route: 048
     Dates: start: 20030430
  141. OXYCODONE [Concomitant]
     Active Substance: OXYCODONE
     Indication: Analgesic therapy
     Dosage: UNK
     Route: 065
  142. OXYCODONE [Concomitant]
     Active Substance: OXYCODONE
     Dosage: 1.25 MILLIGRAM (1.25 MILLIGRAM (AS NECESSARY)
     Route: 048
     Dates: start: 20201006
  143. ACETAMINOPHEN [Concomitant]
     Active Substance: ACETAMINOPHEN
     Indication: Analgesic therapy
     Dosage: 500 MILLIGRAM, QID (500 MG, QID)
     Route: 048
     Dates: start: 20180125
  144. ACETAMINOPHEN [Concomitant]
     Active Substance: ACETAMINOPHEN
     Dosage: 2000 MILLIGRAM (500 MG, QID (DOSE FORM: 245; CUMULATIVE DOSE: 1207916 MG)) / 2000MG QD)
     Route: 048
     Dates: start: 20180125
  145. ACETAMINOPHEN [Concomitant]
     Active Substance: ACETAMINOPHEN
     Dosage: 8000 MILLIGRAM (500 MG, QID)
     Route: 048
     Dates: start: 20180125
  146. ACETAMINOPHEN [Concomitant]
     Active Substance: ACETAMINOPHEN
     Dosage: 32000 MILLIGRAM (8000 MILLIGRAM, QID (500 MG, QID)
     Route: 048
     Dates: start: 20180125
  147. ACETAMINOPHEN [Concomitant]
     Active Substance: ACETAMINOPHEN
     Dosage: 2000 MILLIGRAM (500 MG, QID (DOSE FORM: 245; CUMULATIVE DOSE: 1207916 MG)) / 2000MG QD)
     Route: 048
     Dates: start: 20180125
  148. ACETAMINOPHEN [Concomitant]
     Active Substance: ACETAMINOPHEN
     Dosage: 32000 MILLIGRAM (8000 MILLIGRAM, QID (500 MG, QID)
     Route: 048
     Dates: start: 20180125
  149. ACETAMINOPHEN [Concomitant]
     Active Substance: ACETAMINOPHEN
     Dosage: 500 MILLIGRAM, QID (500 MILLIGRAM, QID (CUMULATIVE DOSE: 301979.16 MG)
     Route: 048
     Dates: start: 20180125
  150. ACETAMINOPHEN [Concomitant]
     Active Substance: ACETAMINOPHEN
     Dosage: 2000 MILLIGRAM, QD (2000 MILLIGRAM, QD (500 MG, QID) (DOSE FORM: 245 (TABLET))
     Route: 048
     Dates: start: 20180125
  151. ROPINIROLE [Concomitant]
     Active Substance: ROPINIROLE
     Indication: Analgesic therapy
     Dosage: UNK
     Route: 065
  152. ROPINIROLE [Concomitant]
     Active Substance: ROPINIROLE
     Dosage: 0.5 MILLIGRAM
     Route: 048
     Dates: start: 20170905
  153. ROPINIROLE [Concomitant]
     Active Substance: ROPINIROLE
     Dosage: 0.5 MILLIGRAM
     Route: 048
     Dates: start: 201607
  154. TEMAZEPAM [Concomitant]
     Active Substance: TEMAZEPAM
     Indication: Insomnia
     Dosage: UNK
     Route: 065
  155. TEMAZEPAM [Concomitant]
     Active Substance: TEMAZEPAM
     Dosage: 30 MILLIGRAM, QD (30 MILLIGRAM, QD (DOSE FORM: 245; CUMULATIVE DOSE: 22380 MG)
     Route: 048
     Dates: start: 20170905
  156. TEMAZEPAM [Concomitant]
     Active Substance: TEMAZEPAM
     Dosage: 30 MILLIGRAM, QD (30MG, QD)
     Route: 048
     Dates: start: 20170905
  157. ZOPICLONE [Concomitant]
     Active Substance: ZOPICLONE
     Indication: Insomnia
     Dosage: 7.5 MILLIGRAM (7.5 MILLIGRAM (DOSE FORM: 245)
     Route: 048
     Dates: start: 20201007

REACTIONS (2)
  - Pyrexia [Recovered/Resolved with Sequelae]
  - Off label use [Unknown]

NARRATIVE: CASE EVENT DATE: 20190921
